FAERS Safety Report 7225930-7 (Version None)
Quarter: 2011Q1

REPORT INFORMATION
  Report Type: 
  Country: None (occurrence: None)
  Receive Date: 20110113
  Receipt Date: 20110110
  Transmission Date: 20110831
  Serious: Yes (Death)
  Sender: FDA-Public Use
  Company Number: GR-PFIZER INC-2011005493

PATIENT
  Age: 87 Year
  Sex: Male
  Weight: 65 kg

DRUGS (8)
  1. TEICOPLANIN [Suspect]
     Dosage: 400 MG, 2X/DAY
     Route: 042
     Dates: start: 20091002
  2. MOXIFLOXACIN [Suspect]
     Indication: ABDOMINAL INFECTION
     Dosage: 1 UNK, 1X/DAY
     Route: 042
     Dates: start: 20090925
  3. CASPOFUNGIN [Suspect]
     Indication: ABDOMINAL INFECTION
     Dosage: 50 MG, 1X/DAY
     Route: 042
     Dates: start: 20090926, end: 20090930
  4. TEICOPLANIN [Suspect]
     Indication: ABDOMINAL INFECTION
     Dosage: 400 MG, 1X/DAY
     Route: 042
     Dates: start: 20091001, end: 20091002
  5. METRONIDAZOLE [Suspect]
     Indication: ABDOMINAL INFECTION
     Dosage: 500 MG, 3X/DAY
     Route: 042
     Dates: start: 20090916
  6. COLISTIN [Suspect]
     Indication: ABDOMINAL INFECTION
     Dosage: 1 UNK, 3X/DAY
     Route: 042
     Dates: start: 20090924
  7. CEFTRIAXONE SODIUM [Suspect]
     Indication: ABDOMINAL INFECTION
     Dosage: 1 G, 1X/DAY
     Route: 042
     Dates: start: 20090916, end: 20090921
  8. MEROPENEM [Suspect]
     Indication: ABDOMINAL INFECTION
     Dosage: 2 G, 3X/DAY
     Route: 042
     Dates: start: 20090922, end: 20090925

REACTIONS (1)
  - DEATH [None]
